FAERS Safety Report 7768265-6 (Version None)
Quarter: 2011Q3

REPORT INFORMATION
  Report Type: 
  Country: None (occurrence: None)
  Receive Date: 20110922
  Receipt Date: 20101013
  Transmission Date: 20111222
  Serious: No
  Sender: FDA-Public Use
  Company Number: US-ASTRAZENECA-2010SE48696

PATIENT
  Age: 39 Year
  Sex: Female
  Weight: 66.7 kg

DRUGS (2)
  1. SEROQUEL XR [Suspect]
     Indication: MAJOR DEPRESSION
     Route: 048
     Dates: start: 20101012
  2. 20 OTHER MEDICATIONS [Concomitant]

REACTIONS (4)
  - FEAR OF WEIGHT GAIN [None]
  - SOMNOLENCE [None]
  - LETHARGY [None]
  - INCREASED APPETITE [None]
